FAERS Safety Report 9885705 (Version 2)
Quarter: 2014Q2

REPORT INFORMATION
  Report Type: Report from Study
  Country: JP (occurrence: JP)
  Receive Date: 20140210
  Receipt Date: 20140604
  Transmission Date: 20141212
  Serious: Yes (Hospitalization)
  Sender: FDA-Public Use
  Company Number: JP-ABBVIE-14P-087-1199212-00

PATIENT
  Age: 66 Year
  Sex: Male
  Weight: 56.5 kg

DRUGS (26)
  1. LIPACREON CAPSULES 150MG [Suspect]
     Indication: PANCREATIC INSUFFICIENCY
     Route: 048
     Dates: start: 20130419, end: 20130712
  2. ESOMEPRAZOLE MAGNESIUM [Concomitant]
     Indication: PANCREATIC CARCINOMA
     Route: 048
  3. CAMOSTAT MESILATE [Concomitant]
     Indication: PANCREATIC INSUFFICIENCY
     Route: 048
     Dates: end: 20130411
  4. CAMOSTAT MESILATE [Concomitant]
     Dates: start: 20130412, end: 20130712
  5. LOXOPROFEN SODIUM [Concomitant]
     Indication: CANCER PAIN
     Route: 048
     Dates: start: 20130502, end: 20130712
  6. LOXOPROFEN SODIUM [Concomitant]
     Dates: end: 20130501
  7. REBAMIPIDE [Concomitant]
     Indication: PROPHYLAXIS AGAINST GASTROINTESTINAL ULCER
     Route: 048
     Dates: start: 20130502, end: 20130712
  8. REBAMIPIDE [Concomitant]
     Dates: end: 20130501
  9. BROTIZOLAM [Concomitant]
     Indication: INSOMNIA
     Route: 048
     Dates: start: 20130620, end: 20130712
  10. SITAGLIPTIN PHOSPHATE [Concomitant]
     Indication: DIABETES MELLITUS
     Route: 048
     Dates: start: 20130527, end: 20130627
  11. TS-1 [Concomitant]
     Indication: PANCREATIC CARCINOMA
     Route: 048
     Dates: start: 20130410, end: 20130423
  12. TS-1 [Concomitant]
     Dates: start: 20130502, end: 20130510
  13. TS-1 [Concomitant]
     Dates: start: 20130521, end: 20130603
  14. GEMCITABINE HYDROCHLORIDE [Concomitant]
     Indication: PANCREATIC CARCINOMA
     Route: 050
     Dates: start: 20130410
  15. GEMCITABINE HYDROCHLORIDE [Concomitant]
     Dates: start: 20130419
  16. GEMCITABINE HYDROCHLORIDE [Concomitant]
     Dates: start: 20130502
  17. GEMCITABINE HYDROCHLORIDE [Concomitant]
     Dates: start: 20130521
  18. GEMCITABINE HYDROCHLORIDE [Concomitant]
     Dates: start: 20130527
  19. GABEXATE MESILATE [Concomitant]
     Indication: ENDOSCOPIC RETROGRADE CHOLANGIOPANCREATOGRAPHY
     Route: 050
     Dates: start: 20130513, end: 20130514
  20. GABEXATE MESILATE [Concomitant]
     Indication: PROPHYLAXIS
     Dates: start: 20130614, end: 20130615
  21. GABEXATE MESILATE [Concomitant]
     Indication: PANCREATITIS
  22. CIMETIDINE [Concomitant]
     Indication: ENDOSCOPIC RETROGRADE CHOLANGIOPANCREATOGRAPHY
     Route: 050
     Dates: start: 20130513, end: 20130513
  23. CIMETIDINE [Concomitant]
     Indication: PROPHYLAXIS
     Dates: start: 20130614, end: 20130614
  24. CIMETIDINE [Concomitant]
     Indication: PANCREATITIS
  25. CEFOPERAZONE SODIUM/SULBACTAM SODIUM [Concomitant]
     Indication: CHOLANGITIS
     Route: 050
     Dates: start: 20130614, end: 20130614
  26. CEFOPERAZONE SODIUM/SULBACTAM SODIUM [Concomitant]
     Dates: start: 20130615, end: 20130624

REACTIONS (8)
  - Cholangitis [Recovering/Resolving]
  - Cholangitis [Recovering/Resolving]
  - Duodenal stenosis [Not Recovered/Not Resolved]
  - Decreased appetite [Not Recovered/Not Resolved]
  - Diabetes mellitus [Recovering/Resolving]
  - Cancer pain [Recovering/Resolving]
  - Insomnia [Recovering/Resolving]
  - Weight decreased [Unknown]
